FAERS Safety Report 9089922 (Version 1)
Quarter: 2013Q1

REPORT INFORMATION
  Report Type: Spontaneous
  Country: US (occurrence: US)
  Receive Date: 20130201
  Receipt Date: 20130201
  Transmission Date: 20140127
  Serious: No
  Sender: FDA-Public Use
  Company Number: US-PFIZER INC-2013039305

PATIENT
  Sex: Female

DRUGS (2)
  1. ADVIL PM [Suspect]
     Dosage: UNK
  2. ADVIL PM [Suspect]
     Dosage: 4 CAPSULE, AT A TIME

REACTIONS (3)
  - Incorrect dose administered [Unknown]
  - Sedation [Unknown]
  - Somnolence [Unknown]
